FAERS Safety Report 9070862 (Version 1)
Quarter: 2013Q1

REPORT INFORMATION
  Report Type: Report from Study
  Country: US (occurrence: US)
  Receive Date: 20130128
  Receipt Date: 20130128
  Transmission Date: 20140127
  Serious: No
  Sender: FDA-Public Use
  Company Number: US-ABBOTT-12P-163-0899404-00

PATIENT
  Age: 45 Year
  Sex: Female

DRUGS (8)
  1. HUMIRA 40 MG/0.8 ML PEN [Suspect]
     Indication: PSORIATIC ARTHROPATHY
     Dates: start: 201111
  2. METHOTREXATE [Concomitant]
     Indication: PSORIATIC ARTHROPATHY
  3. SYNTHROID [Concomitant]
     Indication: THYROID FUNCTION TEST ABNORMAL
  4. FOLIC ACID [Concomitant]
     Indication: SUPPLEMENTATION THERAPY
  5. VITAMIN D [Concomitant]
     Indication: PARATHYROID DISORDER
     Dosage: 60,000
  6. PANTOPRAZOLE [Concomitant]
     Indication: GASTROOESOPHAGEAL REFLUX DISEASE
  7. OXYCODONE [Concomitant]
     Indication: PAIN
     Dosage: RARELY TAKES
  8. ALLERGY [Concomitant]
     Indication: HYPERSENSITIVITY
     Dosage: SHOTS

REACTIONS (2)
  - Injection site pruritus [Not Recovered/Not Resolved]
  - Injection site rash [Unknown]
